FAERS Safety Report 21909992 (Version 1)
Quarter: 2023Q1

REPORT INFORMATION
  Report Type: Other
  Country: CN (occurrence: CN)
  Receive Date: 20230125
  Receipt Date: 20230125
  Transmission Date: 20230418
  Serious: Yes (Other)
  Sender: FDA-Public Use
  Company Number: CN-BoehringerIngelheim-2023-BI-213577

PATIENT

DRUGS (7)
  1. ALTEPLASE [Suspect]
     Active Substance: ALTEPLASE
     Indication: Cerebral infarction
     Dosage: 0.9 MG/KG, THE PATIENTS WERE INJECTED INTRAVENOUSLY WITH 10% OF THE TOTAL DOSE FOR THE FIRST TIME,
     Route: 042
  2. ALTEPLASE [Suspect]
     Active Substance: ALTEPLASE
     Dosage: AND THE REMAINING DOSE WAS PUMPED CONTINUOUSLY WITHIN 1 HOUR.
     Route: 042
  3. BUTYLPHTHALIDE [Concomitant]
     Active Substance: BUTYLPHTHALIDE
     Indication: Cerebral infarction
     Route: 041
  4. EDARAVONE [Concomitant]
     Active Substance: EDARAVONE
  5. CLOPIDOGREL [Concomitant]
     Active Substance: CLOPIDOGREL BISULFATE
  6. ASPIRIN [Concomitant]
     Active Substance: ASPIRIN
  7. ATORVASTATIN [Concomitant]
     Active Substance: ATORVASTATIN

REACTIONS (2)
  - Drug ineffective [Unknown]
  - No adverse event [Unknown]
